FAERS Safety Report 5855721-0 (Version None)
Quarter: 2008Q3

REPORT INFORMATION
  Report Type: 
  Country: None (occurrence: None)
  Receive Date: 20080825
  Receipt Date: 20080813
  Transmission Date: 20090109
  Serious: Yes (Other)
  Sender: FDA-Public Use
  Company Number: US-WYE-H05578408

PATIENT
  Sex: Female

DRUGS (2)
  1. ROBITUSSIN DM [Suspect]
     Indication: COUGH
     Dosage: UNKNOWN DOSE AS NEEDED
     Route: 048
     Dates: end: 20080601
  2. GABITRIL [Suspect]
     Indication: CONVULSION
     Dosage: UNKNOWN
     Route: 048

REACTIONS (3)
  - CONDITION AGGRAVATED [None]
  - CONVULSION [None]
  - VOMITING [None]
